FAERS Safety Report 11030682 (Version 2)
Quarter: 2017Q1

REPORT INFORMATION
  Report Type: Spontaneous
  Country: US (occurrence: US)
  Receive Date: 20150415
  Receipt Date: 20170321
  Transmission Date: 20170428
  Serious: No
  Sender: FDA-Public Use
  Company Number: US-BAYER-2015-134650

PATIENT
  Age: 65 Year
  Sex: Female
  Weight: 136 kg

DRUGS (10)
  1. SIMVASTATIN. [Concomitant]
     Active Substance: SIMVASTATIN
  2. FUROSEMIDA [Concomitant]
     Active Substance: FUROSEMIDE
     Dosage: UNK
  3. HUMALOG [INSULIN] [Concomitant]
  4. CLARITIN REDITABS [Suspect]
     Active Substance: LORATADINE
     Indication: CANCER PAIN
     Dosage: 1 DF, QD
     Route: 048
     Dates: start: 201504
  5. SYNTHROID [Concomitant]
     Active Substance: LEVOTHYROXINE SODIUM
     Dosage: UNK
  6. XANAX [Concomitant]
     Active Substance: ALPRAZOLAM
  7. CLARITIN REDITABS [Suspect]
     Active Substance: LORATADINE
     Indication: PAIN
     Dosage: 2 DF, QD
     Route: 048
     Dates: start: 2016
  8. AFATINIB [Concomitant]
     Active Substance: AFATINIB
  9. LEVOTHYROXINE. [Concomitant]
     Active Substance: LEVOTHYROXINE
  10. LANTUS [Concomitant]
     Active Substance: INSULIN GLARGINE

REACTIONS (3)
  - Medication error [None]
  - Product use issue [Unknown]
  - Off label use [Unknown]

NARRATIVE: CASE EVENT DATE: 201504
